FAERS Safety Report 20709818 (Version 1)
Quarter: 2022Q2

REPORT INFORMATION
  Report Type: Spontaneous
  Country: BR (occurrence: BR)
  Receive Date: 20220414
  Receipt Date: 20220414
  Transmission Date: 20220721
  Serious: Yes (Other)
  Sender: FDA-Public Use
  Company Number: BR-PFIZER INC-202200515768

PATIENT
  Sex: Female

DRUGS (1)
  1. ALPRAZOLAM [Suspect]
     Active Substance: ALPRAZOLAM
     Dosage: 3 TABLETS OF 2 MG, DAILY

REACTIONS (8)
  - Malignant nervous system neoplasm [Unknown]
  - Drug dependence [Unknown]
  - Panic attack [Unknown]
  - Anxiety [Unknown]
  - Malaise [Unknown]
  - Depression [Unknown]
  - Nervousness [Unknown]
  - Mood altered [Unknown]
